FAERS Safety Report 4753938-X (Version None)
Quarter: 2005Q3

REPORT INFORMATION
  Report Type: 
  Country: None (occurrence: None)
  Receive Date: 20050825
  Receipt Date: 20050817
  Transmission Date: 20060218
  Serious: Yes (Death)
  Sender: FDA-Public Use
  Company Number: 2005087572

PATIENT
  Age: 13 Year
  Sex: Female

DRUGS (2)
  1. GEODON [Suspect]
     Indication: BIPOLAR DISORDER
     Dosage: 40 MG (20 MG, 2 IN 1 D), ORAL
     Route: 048
     Dates: start: 20050520
  2. RISPERDAL [Concomitant]

REACTIONS (7)
  - BELLIGERENCE [None]
  - COMPLETED SUICIDE [None]
  - GUN SHOT WOUND [None]
  - HEAD INJURY [None]
  - IRRITABILITY [None]
  - OPPOSITIONAL DEFIANT DISORDER [None]
  - WEIGHT INCREASED [None]
